FAERS Safety Report 8415984-4 (Version None)
Quarter: 2012Q2

REPORT INFORMATION
  Report Type: 
  Country: None (occurrence: None)
  Receive Date: 20120606
  Receipt Date: 20120201
  Transmission Date: 20120825
  Serious: Yes (Other)
  Sender: FDA-Public Use
  Company Number: US-PFIZER INC-2012035713

PATIENT
  Sex: Female

DRUGS (2)
  1. NAPROXEN (ALEVE) [Suspect]
     Indication: BACK PAIN
     Route: 048
  2. MOTRIN [Suspect]
     Indication: BACK PAIN
     Route: 048

REACTIONS (1)
  - GASTRIC HAEMORRHAGE [None]
